FAERS Safety Report 10451643 (Version 2)
Quarter: 2014Q4

REPORT INFORMATION
  Report Type: Spontaneous
  Country: IT (occurrence: IT)
  Receive Date: 20140914
  Receipt Date: 20141127
  Transmission Date: 20150528
  Serious: Yes (Hospitalization)
  Sender: FDA-Public Use
  Company Number: IT-BRISTOL-MYERS SQUIBB COMPANY-21369830

PATIENT
  Age: 54 Year
  Sex: Female

DRUGS (6)
  1. BISOPROLOL HEMIFUMARATE [Concomitant]
     Active Substance: BISOPROLOL FUMARATE
  2. COUMADIN [Suspect]
     Active Substance: WARFARIN SODIUM
     Indication: EMBOLISM
     Dosage: 1DF = 1UNIT
     Route: 048
     Dates: start: 20120522, end: 20140818
  3. KCL RETARD [Concomitant]
     Active Substance: POTASSIUM CHLORIDE
  4. ALDACTONE [Concomitant]
     Active Substance: SPIRONOLACTONE
  5. LASIX [Concomitant]
     Active Substance: FUROSEMIDE
  6. ENAPREN [Concomitant]
     Active Substance: ENALAPRIL MALEATE

REACTIONS (3)
  - Presyncope [Recovered/Resolved]
  - Melaena [Recovered/Resolved]
  - Gastric haemorrhage [Recovered/Resolved]

NARRATIVE: CASE EVENT DATE: 20140818
